FAERS Safety Report 14685473 (Version 4)
Quarter: 2019Q1

REPORT INFORMATION
  Report Type: Spontaneous
  Country: ES (occurrence: ES)
  Receive Date: 20180327
  Receipt Date: 20190109
  Transmission Date: 20190417
  Serious: Yes (Hospitalization)
  Sender: FDA-Public Use
  Company Number: ES-TEVA-2018-ES-870821

PATIENT
  Age: 55 Year
  Sex: Male

DRUGS (3)
  1. IBUPROFENO (1769A) [Suspect]
     Active Substance: IBUPROFEN
     Route: 065
     Dates: start: 20180116, end: 20180116
  2. CODEINA (162A) [Suspect]
     Active Substance: CODEINE PHOSPHATE
     Route: 065
     Dates: start: 20180116, end: 20180116
  3. AMOXICILINA + ?CIDO CLAVUL?NICO [Suspect]
     Active Substance: AMOXICILLIN\CLAVULANIC ACID
     Indication: CATARRH
     Route: 065
     Dates: start: 20180116, end: 20180116

REACTIONS (1)
  - Anaphylactic shock [Recovered/Resolved]

NARRATIVE: CASE EVENT DATE: 20180116
